FAERS Safety Report 16035459 (Version 1)
Quarter: 2019Q1

REPORT INFORMATION
  Report Type: Spontaneous
  Country: US (occurrence: US)
  Receive Date: 20190205
  Receipt Date: 20190205
  Transmission Date: 20190418
  Serious: Yes (Hospitalization)
  Sender: FDA-Public Use
  Company Number: None

PATIENT
  Age: 67 Year
  Sex: Female

DRUGS (17)
  1. LIDEX TOP CR [Concomitant]
  2. SENNA [Concomitant]
     Active Substance: SENNA LEAF\SENNOSIDES\SENNOSIDES A AND B
  3. DIATIAZEM [Concomitant]
  4. SILDENAFIL. [Concomitant]
     Active Substance: SILDENAFIL
  5. PANTOPRAZOLE [Concomitant]
     Active Substance: PANTOPRAZOLE
  6. DULCOLAX NOS [Concomitant]
     Active Substance: BISACODYL OR DOCUSATE SODIUM
  7. MYCOLOG II TOP OINT [Concomitant]
  8. NIZORAL TOP SHAMPOO [Concomitant]
  9. MVI [Concomitant]
     Active Substance: VITAMINS
  10. DOXYCYCLINE. [Concomitant]
     Active Substance: DOXYCYCLINE
  11. OXYCODONE [Concomitant]
     Active Substance: OXYCODONE
  12. COLACE [Concomitant]
     Active Substance: DOCUSATE SODIUM
  13. BUSPIRONE [Concomitant]
     Active Substance: BUSPIRONE HYDROCHLORIDE
  14. BETAMETHASONE TOP OINT [Concomitant]
  15. ASPIRIN. [Concomitant]
     Active Substance: ASPIRIN
  16. TRACLEER [Suspect]
     Active Substance: BOSENTAN
     Indication: PULMONARY ARTERIAL HYPERTENSION
     Dosage: ?          OTHER DOSE:62.5MG;?
     Route: 048
     Dates: start: 201710
  17. METOCLOPRAMIDE. [Concomitant]
     Active Substance: METOCLOPRAMIDE

REACTIONS (5)
  - Small intestinal obstruction [None]
  - Hernia repair [None]
  - Stomal hernia [None]
  - Abnormal faeces [None]
  - Faecaloma [None]

NARRATIVE: CASE EVENT DATE: 20181226
